FAERS Safety Report 13782642 (Version 1)
Quarter: 2017Q3

REPORT INFORMATION
  Report Type: Spontaneous
  Country: US (occurrence: US)
  Receive Date: 20170724
  Receipt Date: 20170724
  Transmission Date: 20171127
  Serious: No
  Sender: FDA-Public Use
  Company Number: US-IPSEN BIOPHARMACEUTICALS, INC.-2016-08737

PATIENT
  Sex: Female
  Weight: 37.65 kg

DRUGS (17)
  1. BACLOFEN. [Concomitant]
     Active Substance: BACLOFEN
  2. LEXAPRO [Concomitant]
     Active Substance: ESCITALOPRAM OXALATE
  3. BOTOX [Concomitant]
     Active Substance: ONABOTULINUMTOXINA
  4. BONIVA [Concomitant]
     Active Substance: IBANDRONATE SODIUM
  5. MIDODRINE [Concomitant]
     Active Substance: MIDODRINE
  6. ZENPEP [Concomitant]
     Active Substance: PANCRELIPASE AMYLASE\PANCRELIPASE LIPASE\PANCRELIPASE PROTEASE
  7. ARICEPT [Concomitant]
     Active Substance: DONEPEZIL HYDROCHLORIDE
  8. FLORINEF ACETATE [Concomitant]
     Active Substance: FLUDROCORTISONE ACETATE
  9. SOMATULINE DEPOT [Suspect]
     Active Substance: LANREOTIDE ACETATE
     Indication: GASTROENTEROPANCREATIC NEUROENDOCRINE TUMOUR DISEASE
     Dosage: 120 MG + 60 MG
     Route: 058
     Dates: start: 201503
  10. COPAXONE [Concomitant]
     Active Substance: GLATIRAMER ACETATE
  11. MYRBETRIQ [Concomitant]
     Active Substance: MIRABEGRON
  12. AMANTADINE. [Concomitant]
     Active Substance: AMANTADINE HYDROCHLORIDE
  13. KLONOPIN [Concomitant]
     Active Substance: CLONAZEPAM
  14. PLAQUENIL [Concomitant]
     Active Substance: HYDROXYCHLOROQUINE SULFATE
  15. PILOCARPINE. [Concomitant]
     Active Substance: PILOCARPINE
  16. TAMSULOSIN [Concomitant]
     Active Substance: TAMSULOSIN
  17. GABAPENTIN. [Concomitant]
     Active Substance: GABAPENTIN

REACTIONS (3)
  - Injection site mass [Not Recovered/Not Resolved]
  - Prescribed overdose [Unknown]
  - Incorrect drug administration rate [Unknown]
